FAERS Safety Report 21291880 (Version 1)
Quarter: 2022Q3

REPORT INFORMATION
  Report Type: Spontaneous
  Country: CA (occurrence: CA)
  Receive Date: 20220904
  Receipt Date: 20220904
  Transmission Date: 20221027
  Serious: Yes (Hospitalization, Other)
  Sender: FDA-Public Use
  Company Number: CA-APOTEX-2018AP022541

PATIENT
  Age: 9 Year
  Sex: Male

DRUGS (4)
  1. VALPROIC ACID [Suspect]
     Active Substance: VALPROIC ACID
     Indication: Epilepsy
     Dosage: 6ML IN THE MORNING AND 7.5ML IN THE AFTERNOON AND EVENING; TOTAL OF 21MG A DAY)
     Route: 065
     Dates: start: 2018, end: 202205
  2. CLOBAZAM [Concomitant]
     Active Substance: CLOBAZAM
     Indication: Seizure
     Dosage: 6 MILLILITER, Q.AM
     Route: 065
  3. CANNABIDIOL\HERBALS [Concomitant]
     Active Substance: CANNABIDIOL\HERBALS
     Indication: Seizure
     Dosage: 1 MILLILITER, QID
     Route: 065
  4. PEG [MACROGOL] [Concomitant]
     Indication: Constipation
     Dosage: UNK, QD
     Route: 065

REACTIONS (9)
  - Haematochezia [Unknown]
  - Pain in extremity [Unknown]
  - Lethargy [Unknown]
  - Feeding intolerance [Unknown]
  - Decreased appetite [Unknown]
  - Gait disturbance [Unknown]
  - Abdominal pain upper [Unknown]
  - Vomiting [Unknown]
  - Pancreatitis [Unknown]

NARRATIVE: CASE EVENT DATE: 20220301
